FAERS Safety Report 15723872 (Version 3)
Quarter: 2019Q4

REPORT INFORMATION
  Report Type: Spontaneous
  Country: DK (occurrence: DK)
  Receive Date: 20181214
  Receipt Date: 20191202
  Transmission Date: 20200122
  Serious: Yes (Death, Life-Threatening, Hospitalization)
  Sender: FDA-Public Use
  Company Number: PHHY2018DK185664

PATIENT
  Age: 63 Year
  Sex: Female

DRUGS (4)
  1. ENALAPRIL [Interacting]
     Active Substance: ENALAPRIL
     Indication: SUICIDAL IDEATION
     Route: 065
  2. AMLODIPINE [Suspect]
     Active Substance: AMLODIPINE BESYLATE
     Indication: SUICIDAL IDEATION
     Dosage: 425 MG, UNK
     Route: 048
  3. METOPROLOL. [Interacting]
     Active Substance: METOPROLOL
     Indication: SUICIDAL IDEATION
     Dosage: 4250 MG, UNK
     Route: 048
  4. ENALAPRIL [Interacting]
     Active Substance: ENALAPRIL
     Route: 048

REACTIONS (7)
  - Drug interaction [Fatal]
  - Cardiotoxicity [Fatal]
  - Suicide attempt [Fatal]
  - Toxicity to various agents [Fatal]
  - Coma [Fatal]
  - Anuria [Fatal]
  - Overdose [Fatal]
